FAERS Safety Report 13508224 (Version 3)
Quarter: 2022Q3

REPORT INFORMATION
  Report Type: Spontaneous
  Country: CA (occurrence: CA)
  Receive Date: 20170503
  Receipt Date: 20220812
  Transmission Date: 20221027
  Serious: Yes (Life-Threatening, Hospitalization, Other)
  Sender: FDA-Public Use
  Company Number: CA-AUROBINDO-AUR-APL-2017-33237

PATIENT
  Age: 67 Year
  Sex: Male

DRUGS (4)
  1. MOXIFLOXACIN [Suspect]
     Active Substance: MOXIFLOXACIN
     Indication: Mycobacterial infection
     Dosage: 400 MILLIGRAM, ONCE A DAY
     Route: 048
  2. CLARITHROMYCIN [Suspect]
     Active Substance: CLARITHROMYCIN
     Indication: Mycobacterial infection
     Dosage: 500 MG, TWO TIMES A DAY (1000 MG ONCE A DAY)
     Route: 048
  3. ETHAMBUTOL [Suspect]
     Active Substance: ETHAMBUTOL HYDROCHLORIDE
     Indication: Mycobacterial infection
     Dosage: 1200 MILLIGRAM, ONCE A DAY, 6 MONTHS
     Route: 048
  4. ETHAMBUTOL [Suspect]
     Active Substance: ETHAMBUTOL HYDROCHLORIDE
     Dosage: 1200 MILLIGRAM
     Route: 048

REACTIONS (2)
  - Disease progression [Unknown]
  - Arthralgia [Unknown]
